FAERS Safety Report 6065184-0 (Version None)
Quarter: 2009Q1

REPORT INFORMATION
  Report Type: 
  Country: None (occurrence: None)
  Receive Date: 20090204
  Receipt Date: 20090130
  Transmission Date: 20090719
  Serious: Yes (Hospitalization)
  Sender: FDA-Public Use
  Company Number: ES-ABBOTT-09P-144-0500612-00

PATIENT
  Age: 45 Year
  Sex: Female

DRUGS (3)
  1. KALETRA [Suspect]
     Indication: HIV INFECTION
     Route: 048
     Dates: start: 20050201
  2. TRUVADA [Interacting]
     Indication: HIV INFECTION
     Dosage: 200MG/545MG
     Route: 048
     Dates: start: 20080501, end: 20081001
  3. VIREAD [Interacting]
     Indication: HIV INFECTION
     Route: 048
     Dates: start: 20080501, end: 20081001

REACTIONS (1)
  - FANCONI SYNDROME [None]
